FAERS Safety Report 8307682-2 (Version None)
Quarter: 2012Q2

REPORT INFORMATION
  Report Type: 
  Country: None (occurrence: None)
  Receive Date: 20120424
  Receipt Date: 20120424
  Transmission Date: 20120825
  Serious: Yes (Hospitalization, Other)
  Sender: FDA-Public Use
  Company Number: None

PATIENT
  Age: 29 Year
  Sex: Male
  Weight: 163.29 kg

DRUGS (1)
  1. RISPERDAL [Suspect]
     Indication: MANIA
     Dosage: 50 MG INJECTION
     Route: 030
     Dates: start: 20110916, end: 20120423

REACTIONS (1)
  - WEIGHT INCREASED [None]
